FAERS Safety Report 7227573 (Version 2)
Quarter: 2012Q4

REPORT INFORMATION
  Report Type: 
  Country: US (occurrence: US)
  Receive Date: 20091222
  Receipt Date: 20121017
  Transmission Date: 20130627
  Serious: Yes (Other)
  Sender: FDA-Public Use
  Company Number: US-ASTRAZENECA-2009UW11187

PATIENT
  Age: 65 Year
  Sex: Female
  Weight: 77.1 kg

DRUGS (9)
  1. ARIMIDEX [Suspect]
     Indication: BREAST CANCER
     Route: 048
     Dates: start: 2006, end: 201201
  2. LISINOPRIL [Suspect]
     Indication: BLOOD PRESSURE
     Route: 048
     Dates: end: 2010
  3. CRESTOR [Suspect]
     Indication: BLOOD CHOLESTEROL INCREASED
     Route: 048
     Dates: end: 20121003
  4. TAMOXIFEN [Suspect]
     Indication: BREAST CANCER
     Route: 048
     Dates: start: 201201, end: 201210
  5. AROMASIN [Suspect]
     Route: 065
     Dates: start: 201210
  6. NOVOLIN N 100 UNSULIN [Concomitant]
     Indication: DIABETES MELLITUS
     Route: 058
     Dates: start: 2003
  7. LOSARTAN [Concomitant]
     Indication: HYPERTENSION
     Route: 048
     Dates: start: 2010
  8. ASPIRIN [Concomitant]
     Route: 048
  9. DRISTOL [Concomitant]
     Indication: MEDICAL DIET
     Route: 048

REACTIONS (10)
  - Hepatic cancer [Unknown]
  - Glomerular filtration rate decreased [Unknown]
  - Glomerular filtration rate increased [Unknown]
  - Back pain [Unknown]
  - Multiple allergies [Unknown]
  - Spinal pain [Unknown]
  - Respiratory disorder [Recovered/Resolved]
  - Hypertension [Unknown]
  - Memory impairment [Unknown]
  - Myalgia [Unknown]
